FAERS Safety Report 23488694 (Version 2)
Quarter: 2024Q1

REPORT INFORMATION
  Report Type: Spontaneous
  Country: US (occurrence: US)
  Receive Date: 20240206
  Receipt Date: 20240222
  Transmission Date: 20240410
  Serious: No
  Sender: FDA-Public Use
  Company Number: US-MYLANLABS-2024M1008486

PATIENT
  Sex: Female

DRUGS (2)
  1. METHYLPHENIDATE [Suspect]
     Active Substance: METHYLPHENIDATE
     Indication: Product used for unknown indication
     Dosage: 10 MILLIGRAM PER 9 HOURS
     Route: 062
  2. DAYTRANA [Concomitant]
     Active Substance: METHYLPHENIDATE
     Dosage: 10 MILLIGRAM
     Route: 065

REACTIONS (1)
  - Drug ineffective [Unknown]
